FAERS Safety Report 5808832-X (Version None)
Quarter: 2008Q3

REPORT INFORMATION
  Report Type: 
  Country: None (occurrence: None)
  Receive Date: 20080714
  Receipt Date: 20080708
  Transmission Date: 20090109
  Serious: Yes (Other)
  Sender: FDA-Public Use
  Company Number: B0529030A

PATIENT
  Age: 72 Year
  Sex: Male

DRUGS (4)
  1. AVODART [Suspect]
     Indication: BENIGN PROSTATIC HYPERPLASIA
     Dosage: .5MG PER DAY
     Dates: start: 20070624, end: 20080618
  2. ARUTIMOL [Concomitant]
     Indication: GLAUCOMA
     Route: 047
  3. DICLOFENAC [Concomitant]
     Indication: ARTHRITIS
     Route: 065
  4. CIPROMED [Concomitant]
     Indication: CONJUNCTIVITIS
     Route: 047

REACTIONS (1)
  - PROSTATOMEGALY [None]
